FAERS Safety Report 11118396 (Version 1)
Quarter: 2015Q2

REPORT INFORMATION
  Report Type: Spontaneous
  Country: SE (occurrence: SE)
  Receive Date: 20150518
  Receipt Date: 20150518
  Transmission Date: 20150821
  Serious: Yes (Other)
  Sender: FDA-Public Use
  Company Number: SE-BIOGENIDEC-2015BI063745

PATIENT
  Age: 38 Year
  Sex: Female

DRUGS (5)
  1. TYSABRI [Suspect]
     Active Substance: NATALIZUMAB
     Indication: RELAPSING-REMITTING MULTIPLE SCLEROSIS
     Route: 042
     Dates: start: 20080910, end: 20150504
  2. ZOPICLONE [Concomitant]
     Active Substance: ZOPICLONE
  3. OXAZEPAM. [Concomitant]
     Active Substance: OXAZEPAM
  4. BUPROPION [Concomitant]
     Active Substance: BUPROPION
  5. ACETYLSALICYLIC ACID + CODEINE [Concomitant]

REACTIONS (2)
  - Ectopic pregnancy [Recovered/Resolved]
  - Maternal exposure during pregnancy [Recovered/Resolved]

NARRATIVE: CASE EVENT DATE: 20140505
